FAERS Safety Report 7584255-0 (Version None)
Quarter: 2011Q2

REPORT INFORMATION
  Report Type: 
  Country: None (occurrence: None)
  Receive Date: 20110630
  Receipt Date: 20110620
  Transmission Date: 20111010
  Serious: Yes (Other)
  Sender: FDA-Public Use
  Company Number: CA-JNJFOC-20110610174

PATIENT
  Sex: Male
  Weight: 93.44 kg

DRUGS (10)
  1. RABEPRAZOLE SODIUM [Concomitant]
  2. LIPIDIL [Concomitant]
  3. ALTACE [Concomitant]
  4. CRESTOR [Concomitant]
  5. VITAMIN B [Concomitant]
  6. REMICADE [Suspect]
     Indication: RHEUMATOID ARTHRITIS
     Route: 042
     Dates: start: 20090101
  7. METHOTREXATE [Concomitant]
  8. ASPIRIN [Concomitant]
  9. TICLOPIDINE HCL [Concomitant]
  10. FOLIC ACID [Concomitant]

REACTIONS (1)
  - TONGUE HAEMORRHAGE [None]
